FAERS Safety Report 12214807 (Version 3)
Quarter: 2016Q2

REPORT INFORMATION
  Report Type: Spontaneous
  Country: IT (occurrence: IT)
  Receive Date: 20160328
  Receipt Date: 20160406
  Transmission Date: 20160815
  Serious: Yes (Other)
  Sender: FDA-Public Use
  Company Number: PHHY2016IT039161

PATIENT
  Age: 38 Year
  Sex: Female

DRUGS (3)
  1. AULIN [Suspect]
     Active Substance: NIMESULIDE
     Indication: DRUG ABUSE
     Dosage: 1 DF
     Route: 048
  2. PARACETAMOL [Suspect]
     Active Substance: ACETAMINOPHEN
     Indication: DRUG ABUSE
     Dosage: 1 DF
     Route: 048
  3. OKI [Suspect]
     Active Substance: KETOPROFEN LYSINE
     Indication: DRUG ABUSE
     Dosage: 1 DF
     Route: 048

REACTIONS (4)
  - Drug abuse [Recovering/Resolving]
  - Vomiting [Recovering/Resolving]
  - Syncope [Recovering/Resolving]
  - Intentional self-injury [Recovering/Resolving]

NARRATIVE: CASE EVENT DATE: 20160113
